FAERS Safety Report 4751310-X (Version None)
Quarter: 2005Q3

REPORT INFORMATION
  Report Type: 
  Country: None (occurrence: None)
  Receive Date: 20050822
  Receipt Date: 20050808
  Transmission Date: 20060218
  Serious: Yes (Other)
  Sender: FDA-Public Use
  Company Number: 2005105193

PATIENT
  Age: 73 Year
  Sex: Female
  Weight: 88.4514 kg

DRUGS (5)
  1. HALCION [Suspect]
     Indication: SLEEP DISORDER
     Dosage: 0.25 (0.25 MG, AS NEEDED) , ORAL
     Route: 048
     Dates: start: 19930101
  2. BEXTRA [Suspect]
     Indication: OSTEOARTHRITIS
     Dosage: 20 MG (20 MG, 1 IN 1 D), ORAL
     Route: 048
     Dates: start: 20040901, end: 20050401
  3. VIOXX [Suspect]
     Indication: ARTHRITIS
     Dates: start: 19990101, end: 20040901
  4. MOBIC [Suspect]
     Indication: ARTHRITIS
     Dates: start: 20050101
  5. PREMARIN [Concomitant]

REACTIONS (8)
  - ARTHRITIS [None]
  - DRUG EFFECT DECREASED [None]
  - DRUG INEFFECTIVE [None]
  - IMPAIRED HEALING [None]
  - MYOCARDIAL INFARCTION [None]
  - OSTEOARTHRITIS [None]
  - PAIN [None]
  - PHARMACEUTICAL PRODUCT COMPLAINT [None]
